FAERS Safety Report 6571311-9 (Version None)
Quarter: 2010Q1

REPORT INFORMATION
  Report Type: 
  Country: None (occurrence: None)
  Receive Date: 20100201
  Receipt Date: 20100119
  Transmission Date: 20100710
  Serious: Yes (Hospitalization, Other)
  Sender: FDA-Public Use
  Company Number: 1-21395323

PATIENT
  Age: 11 Year
  Sex: Female
  Weight: 32.8858 kg

DRUGS (4)
  1. BACTRIM [Suspect]
     Indication: URINARY TRACT INFECTION
     Dosage: ORAL
     Route: 048
     Dates: end: 20090921
  2. METHOTREXATE SODIUM [Suspect]
     Dosage: 2.5 MG, EVERY WEEK
     Dates: start: 20040101
  3. HUMIRA [Suspect]
     Dosage: 20 MG, EVERY OTHER WEEK, INTRAVENOUS
     Route: 042
     Dates: start: 20081201
  4. FOLIC ACID [Concomitant]

REACTIONS (8)
  - ABDOMINAL PAIN [None]
  - ARTHRALGIA [None]
  - CONDITION AGGRAVATED [None]
  - DRUG HYPERSENSITIVITY [None]
  - HEADACHE [None]
  - JUVENILE ARTHRITIS [None]
  - PYREXIA [None]
  - URINARY TRACT INFECTION [None]
